FAERS Safety Report 18265768 (Version 1)
Quarter: 2020Q3

REPORT INFORMATION
  Report Type: Spontaneous
  Country: FR (occurrence: FR)
  Receive Date: 20200915
  Receipt Date: 20200915
  Transmission Date: 20201103
  Serious: Yes (Other)
  Sender: FDA-Public Use
  Company Number: FR-AUROBINDO-AUR-APL-2017-27704

PATIENT
  Age: 1 Month
  Sex: Male
  Weight: 1.46 kg

DRUGS (4)
  1. FUROSEMIDE. [Suspect]
     Active Substance: FUROSEMIDE
     Indication: WEIGHT INCREASED
     Dosage: 0.5 MILLIGRAM/KILOGRAM, ONCE A DAY
     Route: 065
  2. CAFFEINE. [Suspect]
     Active Substance: CAFFEINE
     Dosage: 2.5 MILLIGRAM/KILOGRAM, ONCE A DAY
     Route: 065
  3. DOXAPRAM HYDROCHLORIDE. [Suspect]
     Active Substance: DOXAPRAM HYDROCHLORIDE
     Indication: INFANTILE APNOEA
     Dosage: 7.5 MILLIGRAM/KILOGRAM, FOUR TIMES/DAY
     Route: 048
  4. CAFFEINE. [Suspect]
     Active Substance: CAFFEINE
     Indication: PRODUCT USED FOR UNKNOWN INDICATION
     Dosage: UNK
     Route: 065

REACTIONS (1)
  - Hypokalaemia [Recovered/Resolved]
